FAERS Safety Report 6039342-5 (Version None)
Quarter: 2009Q1

REPORT INFORMATION
  Report Type: 
  Country: None (occurrence: None)
  Receive Date: 20090114
  Receipt Date: 20090109
  Transmission Date: 20090719
  Serious: Yes (Other)
  Sender: FDA-Public Use
  Company Number: GXKR2008DE11877

PATIENT
  Sex: Male

DRUGS (5)
  1. AMIODARONE HCL [Suspect]
  2. CLARITHROMYCIN [Concomitant]
  3. DIGOXIN [Suspect]
  4. METRONIDAZOLE [Suspect]
  5. SPIRONOLACTONE [Suspect]

REACTIONS (1)
  - HEPATITIS ACUTE [None]
